FAERS Safety Report 15786026 (Version 2)
Quarter: 2019Q1

REPORT INFORMATION
  Report Type: Spontaneous
  Country: GB (occurrence: GB)
  Receive Date: 20190103
  Receipt Date: 20190319
  Transmission Date: 20190417
  Serious: Yes (Hospitalization, Other)
  Sender: FDA-Public Use
  Company Number: GB-GLAXOSMITHKLINE-GB2018GSK234012

PATIENT
  Age: 29 Year
  Sex: Female

DRUGS (6)
  1. THYROXINE [Concomitant]
     Active Substance: LEVOTHYROXINE
     Indication: PRODUCT USED FOR UNKNOWN INDICATION
     Dosage: UNK
  2. LACTULOSE. [Concomitant]
     Active Substance: LACTULOSE
     Indication: PRODUCT USED FOR UNKNOWN INDICATION
     Dosage: UNK
  3. SCOPODERM TTS [Suspect]
     Active Substance: SCOPOLAMINE
     Dosage: .25 DF, UNK
     Dates: start: 20190311
  4. SCOPODERM TTS [Suspect]
     Active Substance: SCOPOLAMINE
     Dosage: .5 DF, UNK
     Dates: start: 20190211
  5. CLOBAZAM. [Concomitant]
     Active Substance: CLOBAZAM
     Indication: EPILEPSY
     Dosage: UNK
  6. SCOPODERM TTS [Suspect]
     Active Substance: SCOPOLAMINE
     Indication: DROOLING
     Dosage: 2 DF, UNK
     Dates: start: 2011

REACTIONS (13)
  - Urinary retention [Unknown]
  - Eye movement disorder [Unknown]
  - Therapy cessation [Unknown]
  - Strabismus [Unknown]
  - Off label use [Unknown]
  - Somnolence [Unknown]
  - Vomiting [Unknown]
  - Product use in unapproved indication [Unknown]
  - Mydriasis [Unknown]
  - Cataract [Unknown]
  - Urine output decreased [Recovering/Resolving]
  - Photophobia [Unknown]
  - Impaired gastric emptying [Unknown]

NARRATIVE: CASE EVENT DATE: 201711
